FAERS Safety Report 5971325-3 (Version None)
Quarter: 2008Q4

REPORT INFORMATION
  Report Type: 
  Country: None (occurrence: None)
  Receive Date: 20081128
  Receipt Date: 20081120
  Transmission Date: 20090506
  Serious: Yes (Other)
  Sender: FDA-Public Use
  Company Number: GB-PFIZER INC-2008099919

PATIENT
  Age: 29 Year
  Sex: Male

DRUGS (3)
  1. LYRICA [Suspect]
     Route: 048
  2. ANTIDEPRESSANTS [Concomitant]
  3. RISPERIDONE [Concomitant]

REACTIONS (1)
  - PSYCHOTIC DISORDER [None]
